FAERS Safety Report 11538921 (Version 1)
Quarter: 2015Q3

REPORT INFORMATION
  Report Type: Spontaneous
  Country: US (occurrence: US)
  Receive Date: 20150923
  Receipt Date: 20150923
  Transmission Date: 20151125
  Serious: No
  Sender: FDA-Public Use
  Company Number: PHEH2015US002763

PATIENT
  Age: 67 Year
  Sex: Male

DRUGS (2)
  1. TOLNAFTATE. [Concomitant]
     Active Substance: TOLNAFTATE
     Indication: ONYCHOMYCOSIS
     Dosage: UNK
     Route: 065
  2. LAMISIL [Suspect]
     Active Substance: TERBINAFINE HYDROCHLORIDE
     Indication: PRODUCT USED FOR UNKNOWN INDICATION
     Dosage: UNK
     Route: 065
     Dates: start: 20141203, end: 20150117

REACTIONS (2)
  - Rash generalised [Unknown]
  - Rash [Recovered/Resolved]

NARRATIVE: CASE EVENT DATE: 20150117
